FAERS Safety Report 6536287-9 (Version None)
Quarter: 2010Q1

REPORT INFORMATION
  Report Type: 
  Country: None (occurrence: None)
  Receive Date: 20100113
  Receipt Date: 20091123
  Transmission Date: 20100710
  Serious: No
  Sender: FDA-Public Use
  Company Number: US-ALLERGAN-0916295US

PATIENT
  Age: 45 Year
  Sex: Female

DRUGS (1)
  1. LATISSE [Suspect]
     Indication: HYPOTRICHOSIS
     Dosage: 1 GTT, QHS
     Route: 061
     Dates: start: 20091118, end: 20091121

REACTIONS (4)
  - ABNORMAL SENSATION IN EYE [None]
  - EYE DISCHARGE [None]
  - EYE INFECTION BACTERIAL [None]
  - GIANT PAPILLARY CONJUNCTIVITIS [None]
